FAERS Safety Report 7130220-7 (Version None)
Quarter: 2010Q4

REPORT INFORMATION
  Report Type: 
  Country: None (occurrence: None)
  Receive Date: 20101116
  Receipt Date: 20101105
  Transmission Date: 20110411
  Serious: Yes (Life-Threatening, Hospitalization)
  Sender: FDA-Public Use
  Company Number: OMPQ-NO-1011S-0987

PATIENT
  Age: 18 Year
  Sex: Female

DRUGS (1)
  1. OMNIPAQUE 140 [Suspect]
     Indication: PRODUCT USED FOR UNKNOWN INDICATION
     Dosage: 85 ML, SINGLE DOSE, INTRAVASCULAR
     Dates: start: 20101021, end: 20101021

REACTIONS (3)
  - ANAPHYLACTIC SHOCK [None]
  - GASTROINTESTINAL HAEMORRHAGE [None]
  - HAEMATURIA [None]
